FAERS Safety Report 9473137 (Version 2)
Quarter: 2013Q3

REPORT INFORMATION
  Report Type: Spontaneous
  Country: US (occurrence: US)
  Receive Date: 20130823
  Receipt Date: 20130823
  Transmission Date: 20140515
  Serious: No
  Sender: FDA-Public Use
  Company Number: US-BRISTOL-MYERS SQUIBB COMPANY-17474669

PATIENT
  Age: 32 Year
  Sex: Male
  Weight: 113.38 kg

DRUGS (5)
  1. SPRYCEL (CML) TABS 100 MG [Suspect]
     Indication: CHRONIC MYELOID LEUKAEMIA
     Dosage: 1 TAB DAILY
     Route: 048
     Dates: start: 201303
  2. TYLENOL [Concomitant]
  3. MYLANTA [Concomitant]
  4. ADVIL [Concomitant]
  5. ZANTAC [Concomitant]

REACTIONS (4)
  - Diarrhoea [Unknown]
  - Headache [Unknown]
  - Myalgia [Unknown]
  - Fatigue [Unknown]
